FAERS Safety Report 21334103 (Version 4)
Quarter: 2023Q4

REPORT INFORMATION
  Report Type: Report from Study
  Country: DE (occurrence: DE)
  Receive Date: 20220914
  Receipt Date: 20231013
  Transmission Date: 20240110
  Serious: Yes (Death, Life-Threatening, Hospitalization)
  Sender: FDA-Public Use
  Company Number: DE-Merck Healthcare KGaA-9341785

PATIENT
  Age: 87 Year
  Sex: Male

DRUGS (8)
  1. BAVENCIO [Suspect]
     Active Substance: AVELUMAB
     Indication: Renal cell carcinoma
     Route: 042
     Dates: start: 20220714, end: 20220714
  2. BAVENCIO [Suspect]
     Active Substance: AVELUMAB
     Route: 042
     Dates: start: 20220728, end: 20220728
  3. INLYTA [Suspect]
     Active Substance: AXITINIB
     Indication: Renal cell carcinoma
     Route: 048
     Dates: start: 20220614
  4. DEXAMETHASONE [Concomitant]
     Active Substance: DEXAMETHASONE
     Indication: Brain oedema
     Route: 048
     Dates: start: 20220706
  5. PANTOPRAZOLE [Concomitant]
     Active Substance: PANTOPRAZOLE
     Indication: Prophylaxis
     Route: 048
  6. CERTOPARIN SODIUM [Concomitant]
     Active Substance: CERTOPARIN SODIUM
     Indication: Prophylaxis
     Dosage: 3000 (UNSPECIFIED UNIT)
     Route: 058
     Dates: start: 20220617, end: 20220706
  7. CANDESARTAN [Concomitant]
     Active Substance: CANDESARTAN
     Indication: Hypertension
     Route: 048
     Dates: start: 20210611, end: 20220706
  8. AMLODIPINE [Concomitant]
     Active Substance: AMLODIPINE BESYLATE
     Indication: Hypertension
     Route: 048
     Dates: start: 20210611, end: 20220706

REACTIONS (2)
  - Diverticular perforation [Fatal]
  - Dyspnoea [Not Recovered/Not Resolved]

NARRATIVE: CASE EVENT DATE: 20220731
